FAERS Safety Report 17923295 (Version 1)
Quarter: 2020Q2

REPORT INFORMATION
  Report Type: Spontaneous
  Country: CA (occurrence: CA)
  Receive Date: 20200622
  Receipt Date: 20200622
  Transmission Date: 20200714
  Serious: Yes (Hospitalization)
  Sender: FDA-Public Use
  Company Number: CA-ACCORD-186095

PATIENT
  Age: 60 Year
  Sex: Female
  Weight: 57 kg

DRUGS (23)
  1. CYCLOPHOSPHAMIDE/CYCLOPHOSPHAMIDE MONOHYDRATE [Suspect]
     Active Substance: CYCLOPHOSPHAMIDE
     Indication: HER2 POSITIVE BREAST CANCER
     Route: 042
  2. PMS-EPIRUBICIN [Suspect]
     Active Substance: EPIRUBICIN HYDROCHLORIDE
     Indication: HER2 POSITIVE BREAST CANCER
     Dosage: SOLUTION INTRAVENOUS
     Route: 042
  3. PERJETA [Suspect]
     Active Substance: PERTUZUMAB
     Indication: HER2 POSITIVE BREAST CANCER
     Dosage: STREGTH: 14ML VIAL -CONCENTRATE SOL
     Route: 042
  4. FELODIPINE. [Concomitant]
     Active Substance: FELODIPINE
     Dosage: TABLET EXTENDED RELEASE
  5. FLUOROURACIL. [Suspect]
     Active Substance: FLUOROURACIL
     Indication: HER2 POSITIVE BREAST CANCER
     Route: 065
  6. CYANOCOBALAMIN. [Concomitant]
     Active Substance: CYANOCOBALAMIN
  7. PERJETA [Suspect]
     Active Substance: PERTUZUMAB
     Indication: HER2 POSITIVE BREAST CANCER
     Dosage: STREGTH: 14ML VIAL -CONCENTRATE SOL, 1 EVERY 3 WEEKS
     Route: 042
  8. RAMIPRIL. [Concomitant]
     Active Substance: RAMIPRIL
     Dosage: NOT SPECIFIED
  9. POTASSIUM GLUCONATE [Concomitant]
     Active Substance: POTASSIUM GLUCONATE
  10. DOCETAXEL. [Suspect]
     Active Substance: DOCETAXEL
     Indication: HER2 POSITIVE BREAST CANCER
     Dosage: SOLUTION INTRAVENOUS, 1 EVERY 3 WEEKS
     Route: 042
  11. TRASTUZUMAB. [Suspect]
     Active Substance: TRASTUZUMAB
     Indication: HER2 POSITIVE BREAST CANCER
     Route: 042
  12. FRAGMIN [Concomitant]
     Active Substance: DALTEPARIN SODIUM
     Dosage: SOLUTION INTRAVENOUS
  13. TRASTUZUMAB. [Suspect]
     Active Substance: TRASTUZUMAB
     Indication: HER2 POSITIVE BREAST CANCER
     Dosage: 1 EVERY 3 WEEKS
     Route: 042
  14. SODIUM CHLORIDE. [Suspect]
     Active Substance: SODIUM CHLORIDE
     Dosage: NOT SPECIFIED
     Route: 042
  15. PROCYTOX [Suspect]
     Active Substance: CYCLOPHOSPHAMIDE
     Indication: HER2 POSITIVE BREAST CANCER
     Route: 042
  16. PARACETAMOL [Concomitant]
     Active Substance: ACETAMINOPHEN
  17. DEXAMETHASONE. [Concomitant]
     Active Substance: DEXAMETHASONE
  18. LORAZEPAM. [Concomitant]
     Active Substance: LORAZEPAM
  19. NEULASTA [Concomitant]
     Active Substance: PEGFILGRASTIM
     Dosage: SOLUTION SUBCUTANEOUS
  20. ONDANSETRON [Concomitant]
     Active Substance: ONDANSETRON
  21. ZOPICLONE [Concomitant]
     Active Substance: ZOPICLONE
  22. STEMETIL [Concomitant]
     Active Substance: PROCHLORPERAZINE
  23. TYLENOL [Concomitant]
     Active Substance: ACETAMINOPHEN
     Dosage: NOT SPECIFIED

REACTIONS (2)
  - Dehydration [Not Recovered/Not Resolved]
  - Blood creatine increased [Not Recovered/Not Resolved]
